FAERS Safety Report 11838043 (Version 31)
Quarter: 2018Q4

REPORT INFORMATION
  Report Type: Report from Study
  Country: BR (occurrence: BR)
  Receive Date: 20151215
  Receipt Date: 20181210
  Transmission Date: 20190204
  Serious: Yes (Death, Life-Threatening, Hospitalization, Other)
  Sender: FDA-Public Use
  Company Number: PHHY2015BR079757

PATIENT
  Age: 63 Year
  Sex: Female
  Weight: 66 kg

DRUGS (6)
  1. SANDOSTATIN LAR DEPOT [Suspect]
     Active Substance: OCTREOTIDE ACETATE
     Indication: ACROMEGALY
     Dosage: 20 MG, QMO (EVERY 40 DAYS)
     Route: 030
     Dates: start: 200507
  2. CAPTOPRIL. [Concomitant]
     Active Substance: CAPTOPRIL
     Indication: HYPERTENSION
     Dosage: 1 DF, QD
     Route: 048
     Dates: start: 2005
  3. PROPRANOLOL [Concomitant]
     Active Substance: PROPRANOLOL HYDROCHLORIDE
     Indication: HYPERTENSION
     Dosage: 1 DF, QD
     Route: 048
     Dates: start: 2005
  4. DIPROSPAN [Concomitant]
     Active Substance: BETAMETHASONE DIPROPIONATE\BETAMETHASONE SODIUM PHOSPHATE
     Indication: STRESS
     Route: 065
  5. DIPROSPAN [Concomitant]
     Active Substance: BETAMETHASONE DIPROPIONATE\BETAMETHASONE SODIUM PHOSPHATE
     Indication: CARDIAC DISORDER
  6. CABERGOLINE. [Concomitant]
     Active Substance: CABERGOLINE
     Indication: PRODUCT USED FOR UNKNOWN INDICATION
     Dosage: 2 DF, QOD
     Route: 065

REACTIONS (68)
  - Feeling abnormal [Unknown]
  - Glaucoma [Unknown]
  - Mouth swelling [Unknown]
  - Depression [Recovering/Resolving]
  - Gait disturbance [Not Recovered/Not Resolved]
  - Optic nerve injury [Not Recovered/Not Resolved]
  - Pituitary tumour [Unknown]
  - Irritability [Unknown]
  - Weight increased [Unknown]
  - Bite [Unknown]
  - Memory impairment [Recovering/Resolving]
  - Oropharyngeal pain [Not Recovered/Not Resolved]
  - Headache [Not Recovered/Not Resolved]
  - Sudden death [Fatal]
  - Intraocular pressure increased [Unknown]
  - Blindness [Not Recovered/Not Resolved]
  - Immunodeficiency [Unknown]
  - Delirium [Unknown]
  - Joint injury [Recovering/Resolving]
  - Limb discomfort [Recovering/Resolving]
  - Malaise [Not Recovered/Not Resolved]
  - Gastric dilatation [Unknown]
  - Tongue biting [Unknown]
  - Depressed mood [Unknown]
  - Dizziness [Unknown]
  - Amnesia [Recovered/Resolved]
  - Arthritis [Unknown]
  - Hallucination [Recovered/Resolved]
  - Gait inability [Unknown]
  - Musculoskeletal pain [Unknown]
  - Weight decreased [Unknown]
  - Confusional state [Unknown]
  - Hypertension [Unknown]
  - Blood growth hormone increased [Not Recovered/Not Resolved]
  - Arthritis infective [Not Recovered/Not Resolved]
  - Pain [Not Recovered/Not Resolved]
  - Erythema [Not Recovered/Not Resolved]
  - Nosocomial infection [Not Recovered/Not Resolved]
  - Back pain [Not Recovered/Not Resolved]
  - Hypoaesthesia [Not Recovered/Not Resolved]
  - Pain in extremity [Recovering/Resolving]
  - Arthropathy [Unknown]
  - Swollen tongue [Unknown]
  - Mood altered [Unknown]
  - Insomnia [Not Recovered/Not Resolved]
  - Swelling [Not Recovered/Not Resolved]
  - Joint swelling [Unknown]
  - Contusion [Unknown]
  - Fall [Unknown]
  - Tendonitis [Unknown]
  - Mass [Unknown]
  - Vomiting [Not Recovered/Not Resolved]
  - Inappropriate schedule of product administration [Unknown]
  - Visual impairment [Not Recovered/Not Resolved]
  - Loss of consciousness [Unknown]
  - Eye burns [Not Recovered/Not Resolved]
  - Hypokinesia [Unknown]
  - Arthralgia [Not Recovered/Not Resolved]
  - Abdominal pain upper [Unknown]
  - Visual field defect [Unknown]
  - Disease progression [Recovering/Resolving]
  - Crying [Unknown]
  - Chondropathy [Unknown]
  - Joint dislocation [Unknown]
  - Aggression [Unknown]
  - Nervousness [Not Recovered/Not Resolved]
  - Panic disorder [Unknown]
  - Musculoskeletal chest pain [Recovering/Resolving]

NARRATIVE: CASE EVENT DATE: 2014
